FAERS Safety Report 4554286-3 (Version None)
Quarter: 2005Q1

REPORT INFORMATION
  Report Type: 
  Country: None (occurrence: None)
  Receive Date: 20050118
  Receipt Date: 20050111
  Transmission Date: 20050727
  Serious: Yes (Other)
  Sender: FDA-Public Use
  Company Number: US-GLAXOSMITHKLINE-A0510922B

PATIENT
  Sex: Male
  Weight: 2.2 kg

DRUGS (2)
  1. LAMICTAL [Suspect]
  2. TEGRETOL [Concomitant]
     Dosage: 1G PER DAY

REACTIONS (4)
  - DRUG EXPOSURE DURING PREGNANCY [None]
  - LIFE SUPPORT [None]
  - PREMATURE LABOUR [None]
  - TRACHEOSTOMY [None]
